FAERS Safety Report 5448461-3 (Version None)
Quarter: 2007Q3

REPORT INFORMATION
  Report Type: 
  Country: None (occurrence: None)
  Receive Date: 20070905
  Receipt Date: 20070821
  Transmission Date: 20080115
  Serious: Yes (Death)
  Sender: FDA-Public Use
  Company Number: 2007001544

PATIENT
  Age: 55 Year
  Sex: Male
  Weight: 64.8644 kg

DRUGS (10)
  1. ERLOTINIB (TABLET) [Suspect]
     Indication: GLIOBLASTOMA MULTIFORME
     Dosage: 150 MG (QD), ORAL
     Route: 048
     Dates: start: 20070615, end: 20070704
  2. ERLOTINIB (TABLET) [Suspect]
     Indication: RECURRENT CANCER
     Dosage: 150 MG (QD), ORAL
     Route: 048
     Dates: start: 20070615, end: 20070704
  3. INSULIN (INSULIN) [Concomitant]
  4. DECADRON [Concomitant]
  5. KEPPRA [Concomitant]
  6. HYDROCHLOROTHIAZIDE [Concomitant]
  7. FELODIPINE [Concomitant]
  8. GABAPENTIN [Concomitant]
  9. PROVIGIL [Concomitant]
  10. ATENOLOL [Concomitant]

REACTIONS (2)
  - CARDIOPULMONARY FAILURE [None]
  - GLIOBLASTOMA [None]
